FAERS Safety Report 17746184 (Version 1)
Quarter: 2020Q2

REPORT INFORMATION
  Report Type: Spontaneous
  Country: FI (occurrence: FI)
  Receive Date: 20200505
  Receipt Date: 20200505
  Transmission Date: 20200714
  Serious: Yes (Other)
  Sender: FDA-Public Use
  Company Number: FI-AMGEN-FINSP2020070626

PATIENT
  Age: 78 Year
  Sex: Female

DRUGS (12)
  1. FLORINEF ACETATE [Concomitant]
     Active Substance: FLUDROCORTISONE ACETATE
     Indication: ADDISON^S DISEASE
     Dosage: 0.1 MILLIGRAM, QD
     Route: 048
     Dates: start: 19811016
  2. THYROXIN [Concomitant]
     Active Substance: LEVOTHYROXINE
     Indication: HYPOTHYROIDISM
     Route: 048
     Dates: start: 1981
  3. VI-SIBLIN S [Concomitant]
     Indication: DIVERTICULUM
     Dosage: UNK
     Route: 048
     Dates: start: 20161110
  4. HYDROCORTISON [HYDROCORTISONE] [Concomitant]
     Indication: ADDISON^S DISEASE
     Dosage: 25 MILLIGRAM, QD
     Route: 048
     Dates: start: 19811016
  5. PANTOPRAZOLE RATIOPHARM [Concomitant]
     Indication: DYSPEPSIA
     Dosage: UNK UNK, AS NECESSARY
     Route: 048
     Dates: start: 20171107
  6. PROLIA [Suspect]
     Active Substance: DENOSUMAB
     Indication: OSTEOPOROSIS
     Dosage: 180 MILLIGRAM
     Route: 058
     Dates: start: 20180910, end: 20190905
  7. PANACOD [Concomitant]
     Active Substance: ACETAMINOPHEN\CODEINE PHOSPHATE
     Indication: PAIN
     Dosage: UNK UNK, AS NECESSARY
     Route: 048
  8. PARACETAMOL-RATIOPHARM [Concomitant]
     Indication: PAIN
     Dosage: UNK UNK, AS NECESSARY
     Route: 048
  9. PRIMASPAN [Concomitant]
     Active Substance: ASPIRIN
     Dosage: 50 MILLIGRAM, QD
     Route: 048
     Dates: start: 20161110
  10. COHEMIN [Concomitant]
     Indication: VITAMIN B12 DEFICIENCY
     Dosage: UNK
     Route: 030
     Dates: start: 20160205
  11. CALCICHEW D3 FORTE [Concomitant]
     Active Substance: CALCIUM\CHOLECALCIFEROL
     Indication: OSTEOPOROSIS PROPHYLAXIS
     Dosage: 2 DOSAGE FORM, QD
     Route: 048
     Dates: start: 20101129
  12. ARTELAC [HYPROMELLOSE] [Concomitant]
     Active Substance: HYPROMELLOSES
     Indication: DRY EYE
     Dosage: UNK
     Route: 047
     Dates: start: 20161110

REACTIONS (25)
  - Muscle spasms [Unknown]
  - Paraesthesia [Unknown]
  - Back pain [Unknown]
  - Muscle twitching [Unknown]
  - Osteonecrosis of external auditory canal [Unknown]
  - Ear infection [Unknown]
  - Hypocalcaemia [Unknown]
  - Cellulitis [Unknown]
  - Sinusitis [Unknown]
  - Fall [Unknown]
  - Arthralgia [Unknown]
  - Myalgia [Unknown]
  - Tetany [Unknown]
  - Diverticulitis [Unknown]
  - Sciatica [Unknown]
  - Alopecia [Unknown]
  - Bone pain [Unknown]
  - Abdominal discomfort [Unknown]
  - Constipation [Unknown]
  - Musculoskeletal stiffness [Unknown]
  - Groin pain [Unknown]
  - Abdominal pain [Unknown]
  - Seizure [Unknown]
  - Upper respiratory tract infection [Unknown]
  - Pain in extremity [Unknown]

NARRATIVE: CASE EVENT DATE: 2018
